FAERS Safety Report 23061536 (Version 1)
Quarter: 2023Q4

REPORT INFORMATION
  Report Type: Report from Study
  Country: US (occurrence: US)
  Receive Date: 20231013
  Receipt Date: 20231013
  Transmission Date: 20240110
  Serious: Yes (Other)
  Sender: FDA-Public Use
  Company Number: US-002147023-NVSC2023US220063

PATIENT
  Age: 49 Year
  Sex: Female

DRUGS (1)
  1. FINGOLIMOD [Suspect]
     Active Substance: FINGOLIMOD
     Indication: Product used for unknown indication
     Dosage: 0.5 MG, QD (1 PER DAY)
     Route: 048
     Dates: start: 20221111

REACTIONS (2)
  - Road traffic accident [Unknown]
  - Amnesia [Unknown]

NARRATIVE: CASE EVENT DATE: 20230501
